FAERS Safety Report 15117924 (Version 2)
Quarter: 2018Q3

REPORT INFORMATION
  Report Type: Spontaneous
  Country: US (occurrence: US)
  Receive Date: 20180706
  Receipt Date: 20180808
  Transmission Date: 20181010
  Serious: Yes (Hospitalization, Other)
  Sender: FDA-Public Use
  Company Number: US-JAZZ-2018-US-010555

PATIENT
  Age: 48 Year
  Sex: Female

DRUGS (2)
  1. ARMODAFINIL. [Suspect]
     Active Substance: ARMODAFINIL
     Indication: PRODUCT USED FOR UNKNOWN INDICATION
  2. XYREM [Suspect]
     Active Substance: SODIUM OXYBATE
     Indication: PRODUCT USED FOR UNKNOWN INDICATION
     Route: 048

REACTIONS (11)
  - Pain in extremity [Recovering/Resolving]
  - Agitation [Recovered/Resolved]
  - Somnolence [Recovered/Resolved]
  - Aggression [Recovering/Resolving]
  - Blood pressure increased [Recovering/Resolving]
  - Lethargy [Recovered/Resolved]
  - Bipolar disorder [Recovering/Resolving]
  - Tachycardia [Recovered/Resolved]
  - Back pain [Recovering/Resolving]
  - Suicide attempt [Unknown]
  - Irritability [Recovered/Resolved]
